FAERS Safety Report 15467039 (Version 1)
Quarter: 2018Q4

REPORT INFORMATION
  Report Type: Spontaneous
  Country: ES (occurrence: ES)
  Receive Date: 20181005
  Receipt Date: 20181005
  Transmission Date: 20190204
  Serious: Yes (Hospitalization, Other)
  Sender: FDA-Public Use
  Company Number: ES-TEVA-2018-ES-961125

PATIENT
  Age: 69 Year
  Sex: Female
  Weight: 64 kg

DRUGS (5)
  1. TRAJENTA 5 MG COMPRIMIDOS RECUBIERTOS CON PELICULA, 30 COMPRIMIDOS [Suspect]
     Active Substance: LINAGLIPTIN
     Indication: TYPE 2 DIABETES MELLITUS
     Dosage: 5 MILLIGRAM DAILY; 1-0-0
     Route: 048
     Dates: start: 20171121, end: 20180824
  2. ADIRO 100 MG COMPRIMIDOS GASTRORRESISTENTES EFG [Concomitant]
     Active Substance: ASPIRIN
     Route: 065
  3. RAMIPRIL 10 MG 28 COMPRIMIDOS [Concomitant]
     Active Substance: RAMIPRIL
  4. METFORMINA (METFORMIN HYDROCHLORIDE) [Suspect]
     Active Substance: METFORMIN HYDROCHLORIDE
     Indication: TYPE 2 DIABETES MELLITUS
     Dosage: 1-0-1
     Route: 048
     Dates: start: 20130618
  5. COLEMIN 20 MG COMPRIMIDOS , 28 COMPRIMIDOS [Concomitant]
     Route: 065

REACTIONS (1)
  - Pancreatitis acute [Recovering/Resolving]

NARRATIVE: CASE EVENT DATE: 201808
